FAERS Safety Report 5420143-3 (Version None)
Quarter: 2007Q3

REPORT INFORMATION
  Report Type: 
  Country: None (occurrence: None)
  Receive Date: 20070815
  Receipt Date: 20070730
  Transmission Date: 20080115
  Serious: Yes (Hospitalization)
  Sender: FDA-Public Use
  Company Number: PAR_01682_2007

PATIENT
  Age: 20 Year
  Sex: Female
  Weight: 40 kg

DRUGS (6)
  1. IBUPROFEN [Suspect]
     Indication: TOOTHACHE
     Dosage: (80 MG/KG QD ORAL)
     Route: 048
  2. ACETAMINOPHEN [Suspect]
     Indication: TOOTHACHE
     Dosage: (225 MG/KG QD ORAL)
     Route: 048
  3. ACETAMINOPHEN W/ CODEINE [Suspect]
     Indication: TOOTHACHE
     Dosage: (DF)
  4. ADRENALINE /00003901/ [Concomitant]
  5. BUPIVACAINE [Concomitant]
  6. LIGNOCAINE HYDROCHLORIDE [Concomitant]

REACTIONS (3)
  - DRUG TOXICITY [None]
  - OVERDOSE [None]
  - PULPITIS DENTAL [None]
